FAERS Safety Report 14085382 (Version 11)
Quarter: 2019Q2

REPORT INFORMATION
  Report Type: Report from Study
  Country: CA (occurrence: CA)
  Receive Date: 20171013
  Receipt Date: 20190626
  Transmission Date: 20190711
  Serious: Yes (Hospitalization, Other)
  Sender: FDA-Public Use
  Company Number: PHHY2017CA097311

PATIENT
  Age: 34 Year
  Sex: Female

DRUGS (12)
  1. COSENTYX [Suspect]
     Active Substance: SECUKINUMAB
     Dosage: 150 MG, QW
     Route: 058
     Dates: start: 20170627
  2. COSENTYX [Suspect]
     Active Substance: SECUKINUMAB
     Dosage: 150 MG, QMO
     Route: 058
     Dates: start: 201708
  3. HUMIRA [Concomitant]
     Active Substance: ADALIMUMAB
     Indication: ANKYLOSING SPONDYLITIS
     Dosage: 40 MG, UNK
     Route: 058
  4. METHOTREXATE. [Concomitant]
     Active Substance: METHOTREXATE
     Indication: PRODUCT USED FOR UNKNOWN INDICATION
     Route: 065
  5. COSENTYX [Suspect]
     Active Substance: SECUKINUMAB
     Dosage: 150 MG, Q3W
     Route: 058
     Dates: start: 20180204
  6. REMICADE [Concomitant]
     Active Substance: INFLIXIMAB
     Indication: ANKYLOSING SPONDYLITIS
     Dosage: 5 MG/KG, UNK
     Route: 042
  7. COSENTYX [Suspect]
     Active Substance: SECUKINUMAB
     Dosage: 150 MG, QMO
     Route: 058
     Dates: start: 20171110
  8. COSENTYX [Suspect]
     Active Substance: SECUKINUMAB
     Dosage: 150 MG, QMO
     Route: 058
     Dates: start: 20180702
  9. ENBREL [Concomitant]
     Active Substance: ETANERCEPT
     Indication: ANKYLOSING SPONDYLITIS
     Dosage: 1 DF, QW
     Route: 058
  10. COSENTYX [Suspect]
     Active Substance: SECUKINUMAB
     Indication: ANKYLOSING SPONDYLITIS
     Dosage: 150 MG, QMO
     Route: 058
     Dates: start: 20170613
  11. COSENTYX [Suspect]
     Active Substance: SECUKINUMAB
     Dosage: 150 MG, QW
     Route: 058
     Dates: start: 20170704
  12. COSENTYX [Suspect]
     Active Substance: SECUKINUMAB
     Dosage: 150 MG, QMO
     Route: 058
     Dates: start: 20170711

REACTIONS (27)
  - Pain [Unknown]
  - Musculoskeletal pain [Unknown]
  - Inappropriate schedule of product administration [Unknown]
  - Herpes virus infection [Unknown]
  - Depression [Unknown]
  - Infection [Unknown]
  - Diarrhoea [Recovering/Resolving]
  - Psoriasis [Unknown]
  - Pruritus [Unknown]
  - Spondylitis [Unknown]
  - Abdominal pain [Not Recovered/Not Resolved]
  - Vulvovaginal mycotic infection [Unknown]
  - Insomnia [Unknown]
  - Ingrown hair [Recovering/Resolving]
  - Arthralgia [Unknown]
  - Bronchitis [Unknown]
  - Rash generalised [Not Recovered/Not Resolved]
  - Drug ineffective [Unknown]
  - Pelvic infection [Unknown]
  - Vaginal infection [Not Recovered/Not Resolved]
  - Gastric ulcer [Unknown]
  - Urinary tract infection [Unknown]
  - Fungal infection [Unknown]
  - Vaginal abscess [Unknown]
  - Staphylococcal skin infection [Recovering/Resolving]
  - Madarosis [Unknown]
  - Skin bacterial infection [Unknown]

NARRATIVE: CASE EVENT DATE: 2017
